FAERS Safety Report 17545921 (Version 2)
Quarter: 2020Q1

REPORT INFORMATION
  Report Type: Spontaneous
  Country: US (occurrence: US)
  Receive Date: 20200316
  Receipt Date: 20200320
  Transmission Date: 20200409
  Serious: Yes (Other)
  Sender: FDA-Public Use
  Company Number: US-PFIZER INC-2020111032

PATIENT
  Age: 59 Year
  Sex: Female

DRUGS (3)
  1. DOXORUBICIN HCL [Suspect]
     Active Substance: DOXORUBICIN HYDROCHLORIDE
     Indication: ANGIOSARCOMA
     Dosage: 20 MG/M2, CYCLIC (CONTINUOUS INFUSION FOR 18 H ON DAY1, WEEKLY FOR 3 WEEKS, EVERY 28 DAYS FOR 3 CYL)
  2. PACLITAXEL. [Suspect]
     Active Substance: PACLITAXEL
     Indication: ANGIOSARCOMA
     Dosage: 100 MG/M2, CYCLIC (OVER 3 H ON DAY 2. WEEKLY FOR 3 WEEKS, EVERY 28 DAYS FOR 3 CYCLES)
     Route: 042
  3. CISPLATIN. [Suspect]
     Active Substance: CISPLATIN
     Indication: ANGIOSARCOMA
     Dosage: 30 MG/M2, CYCLIC (ON DAY 2, WEEKLY FOR 3 WEEKS, EVERY 28 DAYS FOR 3 CYCLES)

REACTIONS (3)
  - Acute kidney injury [Unknown]
  - Fatigue [Unknown]
  - Nausea [Unknown]
